FAERS Safety Report 16809588 (Version 1)
Quarter: 2019Q4

REPORT INFORMATION
  Report Type: Spontaneous
  Country: US (occurrence: US)
  Receive Date: 20190915
  Receipt Date: 20190915
  Transmission Date: 20200122
  Serious: Yes (Life-Threatening)
  Sender: FDA-Public Use
  Company Number: None

PATIENT
  Age: 75 Year
  Sex: Female
  Weight: 84.6 kg

DRUGS (8)
  1. ELIQUIS [Concomitant]
     Active Substance: APIXABAN
  2. LEVOXIL [Concomitant]
  3. VITAMIND [Concomitant]
  4. CLARITIN [Concomitant]
     Active Substance: LORATADINE
  5. CALCIOUM [Concomitant]
  6. CAPECITABINE 500MG [Suspect]
     Active Substance: CAPECITABINE
     Indication: VERTEBRAL LESION
     Dosage: ?          QUANTITY:5 TABLET(S);?
     Route: 048
     Dates: start: 20190824, end: 20190903
  7. METOPROLOL. [Concomitant]
     Active Substance: METOPROLOL
  8. ATORVASTATIN [Concomitant]
     Active Substance: ATORVASTATIN

REACTIONS (5)
  - Stomatitis [None]
  - Diarrhoea [None]
  - Blood phosphorus decreased [None]
  - Blood potassium decreased [None]
  - Palmar-plantar erythrodysaesthesia syndrome [None]

NARRATIVE: CASE EVENT DATE: 20190905
